FAERS Safety Report 8203365-8 (Version None)
Quarter: 2012Q1

REPORT INFORMATION
  Report Type: 
  Country: None (occurrence: None)
  Receive Date: 20120312
  Receipt Date: 20120301
  Transmission Date: 20120608
  Serious: Yes (Hospitalization)
  Sender: FDA-Public Use
  Company Number: FR-ASTRAZENECA-2012SE15047

PATIENT
  Age: 59 Year
  Sex: Male
  Weight: 73 kg

DRUGS (7)
  1. DEPAKOTE [Concomitant]
     Route: 048
     Dates: start: 20030101
  2. ZOPLICONE [Concomitant]
     Route: 048
     Dates: start: 20040101
  3. METFORMIN HCL [Concomitant]
     Route: 048
     Dates: start: 20110501
  4. SURFALEM S25 [Concomitant]
     Route: 048
     Dates: start: 20040101
  5. QUETIAPINE FUMARATE [Suspect]
     Indication: MANIA
     Route: 048
     Dates: start: 20120208, end: 20120218
  6. PARKINANE LP [Concomitant]
     Route: 048
     Dates: start: 20120217
  7. ALFUZOSIN HCL [Concomitant]
     Route: 048
     Dates: start: 20080101

REACTIONS (5)
  - SEDATION [None]
  - VOMITING [None]
  - ENURESIS [None]
  - DISORIENTATION [None]
  - HYPONATRAEMIA [None]
